FAERS Safety Report 23759575 (Version 2)
Quarter: 2024Q2

REPORT INFORMATION
  Report Type: Report from Study
  Country: GR (occurrence: GR)
  Receive Date: 20240418
  Receipt Date: 20240512
  Transmission Date: 20240715
  Serious: Yes (Death, Life-Threatening, Hospitalization, Disabling, Other)
  Sender: FDA-Public Use
  Company Number: GR-ABBVIE-5724907

PATIENT
  Age: 82 Year
  Sex: Female
  Weight: 68 kg

DRUGS (17)
  1. VENETOCLAX [Suspect]
     Active Substance: VENETOCLAX
     Indication: Acute myeloid leukaemia
     Route: 048
     Dates: start: 20221102, end: 20230107
  2. STABILANOL [Concomitant]
     Indication: Antifungal treatment
     Route: 048
  3. FILGRASTIM [Concomitant]
     Active Substance: FILGRASTIM
     Indication: Granulocyte-colony stimulating factor level decreased
     Dosage: UNIT DOSE: 300 UG/0.5ML?FREQUENCY TEXT: TUESDAY THURSDAY
     Route: 042
     Dates: start: 20230208
  4. ATACAND [Concomitant]
     Active Substance: CANDESARTAN CILEXETIL
     Indication: Hypertension
     Route: 048
  5. NEXIUM [Concomitant]
     Active Substance: ESOMEPRAZOLE MAGNESIUM
     Indication: Gastrooesophageal reflux disease
     Route: 048
     Dates: start: 20230208
  6. Penrazol [Concomitant]
     Indication: Antacid therapy
     Route: 048
  7. CEFIXIME [Concomitant]
     Active Substance: CEFIXIME
     Indication: Antibiotic therapy
     Route: 048
  8. MINIFOM [Concomitant]
     Indication: Abdominal pain
     Route: 048
  9. HYDROCHLOROTHIAZIDE\VALSARTAN [Concomitant]
     Active Substance: HYDROCHLOROTHIAZIDE\VALSARTAN
     Indication: Hypertension
     Dosage: (160+12+5) MG
     Route: 048
  10. ATOR CHOL [Concomitant]
     Indication: Blood cholesterol abnormal
     Dosage: FREQUENCY TEXT: MONDAY-WEDNEDSDAY-FRIDAY
     Route: 048
  11. LINEZOLID [Concomitant]
     Active Substance: LINEZOLID
     Indication: Antibiotic therapy
     Route: 048
  12. DUPHALAC [Concomitant]
     Active Substance: LACTULOSE
     Indication: Constipation
     Dosage: TIME INTERVAL: AS NECESSARY
     Route: 048
     Dates: start: 20230203
  13. DOMPERIDONE [Concomitant]
     Active Substance: DOMPERIDONE
     Indication: Nausea
     Dosage: TIME INTERVAL: 0.33333333 DAYS: 5 1MG/ML
     Route: 048
  14. NEBIVOLOL HYDROCHLORIDE [Concomitant]
     Active Substance: NEBIVOLOL HYDROCHLORIDE
     Indication: Cardiac disorder
     Route: 048
  15. VASTAREL [Concomitant]
     Active Substance: TRIMETAZIDINE DIHYDROCHLORIDE
     Indication: Cardiovascular event prophylaxis
     Route: 048
  16. TRANSAMIN [Concomitant]
     Active Substance: TRANEXAMIC ACID
     Indication: Haemorrhage prophylaxis
     Dosage: TIME INTERVAL: 0.33333333 DAYS
     Route: 048
     Dates: start: 20230203
  17. NOZAC [Concomitant]
     Indication: Product used for unknown indication
     Route: 048

REACTIONS (7)
  - Death [Fatal]
  - Enterococcus test positive [Unknown]
  - Infection [Recovered/Resolved]
  - Febrile neutropenia [Unknown]
  - Sepsis [Unknown]
  - Haematotoxicity [Not Recovered/Not Resolved]
  - Neutropenia [Not Recovered/Not Resolved]

NARRATIVE: CASE EVENT DATE: 20230125
